FAERS Safety Report 9847824 (Version 1)
Quarter: 2014Q1

REPORT INFORMATION
  Report Type: Spontaneous
  Country: US (occurrence: US)
  Receive Date: 20140128
  Receipt Date: 20140128
  Transmission Date: 20141002
  Serious: No
  Sender: FDA-Public Use
  Company Number: US-BIOGENIDEC-2014BI006737

PATIENT
  Sex: Female
  Weight: 76 kg

DRUGS (18)
  1. TECFIDERA [Suspect]
     Indication: MULTIPLE SCLEROSIS
     Route: 048
     Dates: start: 201311
  2. TECFIDERA [Suspect]
     Indication: MULTIPLE SCLEROSIS
     Route: 048
  3. TECFIDERA [Suspect]
     Indication: MULTIPLE SCLEROSIS
     Route: 048
  4. CYMBALTA [Concomitant]
  5. DULOXETINE [Concomitant]
  6. NORTRIPTYLINE [Concomitant]
  7. HYDROCODONE [Concomitant]
  8. DIAZEPAM [Concomitant]
  9. METHYLPHENIDATE [Concomitant]
  10. LIDODERM [Concomitant]
  11. CARISOPRODOL [Concomitant]
  12. MENTANX [Concomitant]
  13. LISINOPRIL [Concomitant]
  14. CINNAMON [Concomitant]
  15. CITRACAL D [Concomitant]
  16. OCUVITE [Concomitant]
  17. SOMA [Concomitant]
  18. ZANTAC [Concomitant]

REACTIONS (4)
  - Headache [Unknown]
  - Prescribed underdose [Recovered/Resolved]
  - Diarrhoea [Unknown]
  - Abdominal pain [Unknown]
